FAERS Safety Report 20113854 (Version 1)
Quarter: 2021Q4

REPORT INFORMATION
  Report Type: Report from Study
  Country: ZA (occurrence: ZA)
  Receive Date: 20211125
  Receipt Date: 20211125
  Transmission Date: 20220303
  Serious: Yes (Hospitalization, Other)
  Sender: FDA-Public Use
  Company Number: ZA-JNJFOC-20211124721

PATIENT
  Age: 56 Year
  Sex: Male
  Weight: 86 kg

DRUGS (2)
  1. INFLIXIMAB [Suspect]
     Active Substance: INFLIXIMAB
     Indication: Product used for unknown indication
     Route: 042
  2. AZATHIOPRINE [Concomitant]
     Active Substance: AZATHIOPRINE
     Indication: Crohn^s disease
     Route: 065

REACTIONS (1)
  - Disseminated tuberculosis [Unknown]

NARRATIVE: CASE EVENT DATE: 20211109
